FAERS Safety Report 7727803-X (Version None)
Quarter: 2011Q3

REPORT INFORMATION
  Report Type: 
  Country: None (occurrence: None)
  Receive Date: 20110905
  Receipt Date: 20110825
  Transmission Date: 20111222
  Serious: Yes (Other)
  Sender: FDA-Public Use
  Company Number: US-BIOGENIDEC-2010BI033762

PATIENT
  Age: 57 Year
  Sex: Female
  Weight: 72 kg

DRUGS (2)
  1. TYSABRI [Suspect]
     Route: 042
     Dates: start: 20080813, end: 20100909
  2. TYSABRI [Suspect]
     Indication: MULTIPLE SCLEROSIS
     Route: 042
     Dates: start: 20050118, end: 20050218

REACTIONS (3)
  - MALIGNANT MELANOMA [None]
  - ASTHENIA [None]
  - ANGER [None]
